FAERS Safety Report 7930200-5 (Version None)
Quarter: 2011Q4

REPORT INFORMATION
  Report Type: 
  Country: None (occurrence: None)
  Receive Date: 20111108
  Receipt Date: 20110517
  Transmission Date: 20120403
  Serious: Yes (Death)
  Sender: FDA-Public Use
  Company Number: PHHY2011US41647

PATIENT
  Sex: Male

DRUGS (7)
  1. ATIVAN [Concomitant]
  2. ACTOS (PIOGLITAZONE, PIOGLITAZONE HYDROCHLORIDE) [Concomitant]
  3. ZIAC [Concomitant]
  4. DEXAMETHASONE [Concomitant]
  5. COMPRAZINE (PROCHLORPERAZINE EDISYLATE) [Concomitant]
  6. ZOMETA [Suspect]
     Dosage: 4 MG, QMO
  7. VASTAREL (TRIMETAZIDINE HYDROCHLORIDE) [Concomitant]

REACTIONS (2)
  - NEOPLASM MALIGNANT [None]
  - DISEASE PROGRESSION [None]
